FAERS Safety Report 8364786-6 (Version None)
Quarter: 2012Q2

REPORT INFORMATION
  Report Type: 
  Country: None (occurrence: None)
  Receive Date: 20120516
  Receipt Date: 20120508
  Transmission Date: 20120825
  Serious: Yes (Other)
  Sender: FDA-Public Use
  Company Number: JP-VERTEX PHARMACEUTICALS INC.-AE-2012-006842

PATIENT
  Age: 68 Year
  Sex: Male

DRUGS (9)
  1. TELAVIC (TELAPREVIR) [Suspect]
     Route: 048
     Dates: start: 20120323, end: 20120413
  2. BISOPROLOL FUMARATE [Concomitant]
     Route: 048
  3. RIBAVIRIN [Concomitant]
     Route: 048
     Dates: start: 20120309
  4. TELAVIC (TELAPREVIR) [Suspect]
     Indication: HEPATITIS C
     Route: 048
     Dates: start: 20120309, end: 20120322
  5. OLMESARTAN MEDOXOMIL [Concomitant]
     Route: 048
  6. PEINTERFERON ALFA-2B [Concomitant]
     Route: 051
     Dates: start: 20120309
  7. PLAVIX [Concomitant]
     Route: 048
  8. ADALAT CC [Concomitant]
     Route: 048
  9. WARFARIN SODIUM [Concomitant]
     Route: 048

REACTIONS (1)
  - BLOOD CREATININE INCREASED [None]
